FAERS Safety Report 5812597-5 (Version None)
Quarter: 2008Q3

REPORT INFORMATION
  Report Type: 
  Country: None (occurrence: None)
  Receive Date: 20080711
  Receipt Date: 20080627
  Transmission Date: 20090109
  Serious: Yes (Hospitalization)
  Sender: FDA-Public Use
  Company Number: 2008BI002398

PATIENT
  Age: 54 Year
  Sex: Female

DRUGS (1)
  1. AVONEX [Suspect]
     Indication: MULTIPLE SCLEROSIS
     Dosage: 30 UG;QW; IM,
     Route: 030
     Dates: start: 20030916, end: 20080301

REACTIONS (8)
  - ABDOMINAL PAIN UPPER [None]
  - BILIARY DYSKINESIA [None]
  - CHEST PAIN [None]
  - CHOLECYSTECTOMY [None]
  - GALLBLADDER DISORDER [None]
  - LIPOSUCTION [None]
  - MAMMOPLASTY [None]
  - POSTOPERATIVE WOUND INFECTION [None]
